FAERS Safety Report 11246285 (Version 1)
Quarter: 2015Q3

REPORT INFORMATION
  Report Type: Spontaneous
  Country: US (occurrence: None)
  Receive Date: 20150706
  Receipt Date: 20150706
  Transmission Date: 20151125
  Serious: Yes (Other)
  Sender: FDA-Public Use
  Company Number: None

PATIENT
  Age: 31 Year
  Sex: Female
  Weight: 68.04 kg

DRUGS (5)
  1. MIRENA [Concomitant]
     Active Substance: LEVONORGESTREL
  2. ROBAXIN [Suspect]
     Active Substance: METHOCARBAMOL
     Indication: NERVE COMPRESSION
     Dosage: 1-2 PILLS NIGHTLY
     Route: 048
     Dates: start: 20150702, end: 20150704
  3. DAILY VITAMIN [Concomitant]
     Active Substance: VITAMINS
  4. CALCIUM [Concomitant]
     Active Substance: CALCIUM
  5. FIBER [Concomitant]
     Active Substance: PSYLLIUM HUSK

REACTIONS (12)
  - Emotional disorder [None]
  - Mood swings [None]
  - Anger [None]
  - Nausea [None]
  - Judgement impaired [None]
  - Anxiety [None]
  - Dizziness [None]
  - Erythema [None]
  - Insomnia [None]
  - Confusional state [None]
  - Fear [None]
  - Sleep disorder [None]

NARRATIVE: CASE EVENT DATE: 20150704
